FAERS Safety Report 10306352 (Version 2)
Quarter: 2014Q3

REPORT INFORMATION
  Report Type: Report from Study
  Country: SI (occurrence: SI)
  Receive Date: 20140715
  Receipt Date: 20140717
  Transmission Date: 20150326
  Serious: Yes (Other)
  Sender: FDA-Public Use
  Company Number: SI-US-EMD SERONO, INC.-7306160

PATIENT
  Sex: Female

DRUGS (2)
  1. PARACETAMOL [Concomitant]
     Active Substance: ACETAMINOPHEN
     Indication: PRODUCT USED FOR UNKNOWN INDICATION
  2. REBIF [Suspect]
     Active Substance: INTERFERON BETA-1A
     Indication: MULTIPLE SCLEROSIS
     Route: 058
     Dates: start: 2004

REACTIONS (6)
  - Nervousness [Unknown]
  - Influenza like illness [Unknown]
  - Disease progression [Unknown]
  - Feeling abnormal [Unknown]
  - Central nervous system lesion [Unknown]
  - Varicose vein [Unknown]

NARRATIVE: CASE EVENT DATE: 20111012
